FAERS Safety Report 5471605-4 (Version None)
Quarter: 2007Q3

REPORT INFORMATION
  Report Type: 
  Country: None (occurrence: None)
  Receive Date: 20070928
  Receipt Date: 20070917
  Transmission Date: 20080115
  Serious: Yes (Other)
  Sender: FDA-Public Use
  Company Number: SE-PFIZER INC-2007078054

PATIENT
  Age: 64 Year
  Sex: Male

DRUGS (3)
  1. VIAGRA [Suspect]
     Dosage: DAILY DOSE:50MG
     Route: 048
  2. ASPIRIN [Concomitant]
  3. AMLODIPINE [Concomitant]

REACTIONS (5)
  - DYSPEPSIA [None]
  - ERUCTATION [None]
  - FAECES DISCOLOURED [None]
  - GASTROOESOPHAGEAL REFLUX DISEASE [None]
  - HICCUPS [None]
